FAERS Safety Report 6640383-5 (Version None)
Quarter: 2010Q1

REPORT INFORMATION
  Report Type: 
  Country: None (occurrence: None)
  Receive Date: 20100303
  Receipt Date: 20090311
  Transmission Date: 20100710
  Serious: Yes (Other)
  Sender: FDA-Public Use
  Company Number: 621156

PATIENT
  Age: 80 Year
  Sex: Female
  Weight: 66.4 kg

DRUGS (17)
  1. BONIVA [Suspect]
     Indication: OSTEOPOROSIS
     Dosage: 1 PER MONTH SUBCUTANEOUS
     Route: 058
     Dates: start: 20090227
  2. AMIODARONE HCL [Concomitant]
  3. CALCIUM/VITAMIN D (CALCIUM/VITAMIN D NOS) [Concomitant]
  4. COUMADIN [Concomitant]
  5. DETROL LA [Concomitant]
  6. POTASSIUM CHLORIDE [Concomitant]
  7. LASIX [Concomitant]
  8. METOPROLOL (METOPROLOL) [Concomitant]
  9. NORVASC [Concomitant]
  10. PROTONIX [Concomitant]
  11. ASCORBIC ACID [Concomitant]
  12. FLU VACCINE (INFLUENZA VIRUS VACCINE) [Concomitant]
  13. MECLIZINE [Concomitant]
  14. PERCOCET (OXYCODONE/PARACETAMOL) [Concomitant]
  15. ROBAXIN [Concomitant]
  16. TYLENOL [Concomitant]
  17. PHENERGAN HCL [Concomitant]

REACTIONS (2)
  - INCORRECT ROUTE OF DRUG ADMINISTRATION [None]
  - INJECTION SITE REACTION [None]
